FAERS Safety Report 7717409-0 (Version None)
Quarter: 2011Q3

REPORT INFORMATION
  Report Type: 
  Country: None (occurrence: None)
  Receive Date: 20110823
  Receipt Date: 20110621
  Transmission Date: 20111222
  Serious: Yes (Hospitalization)
  Sender: FDA-Public Use
  Company Number: 20110415CINRY1950

PATIENT
  Sex: Female

DRUGS (4)
  1. PHENERGAN [Concomitant]
  2. CINRYZE [Suspect]
     Indication: PROPHYLAXIS
     Dosage: (1000 UNIT, 2 IN 1 WK), INTRAVENOUS
     Route: 042
     Dates: start: 20101201, end: 20110404
  3. CINRYZE [Suspect]
     Indication: HEREDITARY ANGIOEDEMA
     Dosage: (1000 UNIT, 2 IN 1 WK), INTRAVENOUS
     Route: 042
     Dates: start: 20101201, end: 20110404
  4. BENADRYL [Concomitant]

REACTIONS (5)
  - HYPERSENSITIVITY [None]
  - HEREDITARY ANGIOEDEMA [None]
  - DYSPNOEA [None]
  - HYPOTENSION [None]
  - INJURY [None]
